FAERS Safety Report 5031426-3 (Version None)
Quarter: 2006Q2

REPORT INFORMATION
  Report Type: 
  Country: None (occurrence: None)
  Receive Date: 20060621
  Receipt Date: 20050930
  Transmission Date: 20061013
  Serious: Yes (Other)
  Sender: FDA-Public Use
  Company Number: PHRM2005FR02606

PATIENT
  Age: 70 Year
  Sex: Female
  Weight: 75 kg

DRUGS (8)
  1. ZOMETA [Suspect]
     Indication: METASTASES TO BONE
     Dosage: 4 MG, QMO
     Route: 042
     Dates: start: 20030606
  2. AREDIA [Suspect]
     Indication: METASTASES TO BONE
     Dosage: 90 MG, QMO
     Route: 042
     Dates: start: 20020129, end: 20030503
  3. TAMOXIFEN [Concomitant]
     Indication: BREAST CANCER METASTATIC
     Dosage: 20 MG, QD
     Dates: start: 20010701, end: 20030601
  4. LYTOS [Concomitant]
     Indication: BREAST CANCER METASTATIC
     Dates: start: 20010701, end: 20020101
  5. ARIMIDEX [Concomitant]
     Indication: BREAST CANCER METASTATIC
     Dosage: 1 MG DAILY
     Dates: start: 20030601, end: 20040501
  6. XELODA [Concomitant]
     Indication: BREAST CANCER METASTATIC
     Route: 048
     Dates: start: 20040501, end: 20050401
  7. TAXOL [Concomitant]
     Indication: BREAST CANCER METASTATIC
     Dates: start: 20050401
  8. FASLODEX [Concomitant]
     Route: 042

REACTIONS (7)
  - DENTAL ALVEOLAR ANOMALY [None]
  - OSTEOLYSIS [None]
  - OSTEONECROSIS [None]
  - OSTEOSYNTHESIS [None]
  - SINUS DISORDER [None]
  - TOOTH DISORDER [None]
  - WOUND DEBRIDEMENT [None]
